FAERS Safety Report 10588539 (Version 1)
Quarter: 2014Q4

REPORT INFORMATION
  Report Type: Spontaneous
  Country: IT (occurrence: IT)
  Receive Date: 20141117
  Receipt Date: 20141117
  Transmission Date: 20150529
  Serious: Yes (Hospitalization)
  Sender: FDA-Public Use
  Company Number: IT-TEVA-522476ISR

PATIENT
  Age: 27 Year
  Sex: Male

DRUGS (11)
  1. CHLORPROMAZINE [Concomitant]
     Active Substance: CHLORPROMAZINE
     Route: 065
  2. XANAX [Suspect]
     Active Substance: ALPRAZOLAM
     Indication: DRUG ABUSE
     Route: 065
  3. METHYLENEDIOXYPYROVALERONE [Suspect]
     Active Substance: METHYLENEDIOXYPYROVALERONE HYDROCHLORIDE
     Indication: DRUG ABUSE
     Dosage: USED TO TAKE MIXTURE OF 10G POWDER IN 1-2ML OF WATER BY IV SELF-INJECTION UP TO 3 TIMES DAILY
     Route: 042
  4. METHYLENEDIOXYPYROVALERONE [Suspect]
     Active Substance: METHYLENEDIOXYPYROVALERONE HYDROCHLORIDE
     Indication: DRUG ABUSE
     Dosage: 150MG EVERY 6-7 HOURS
     Route: 042
  5. NOZINAN [Concomitant]
     Active Substance: LEVOMEPROMAZINE
     Route: 048
  6. CHLORDIAZEPOXIDE [Suspect]
     Active Substance: CHLORDIAZEPOXIDE
     Indication: DRUG ABUSE
     Route: 048
  7. ALPRAZOLAM. [Suspect]
     Active Substance: ALPRAZOLAM
     Indication: DRUG ABUSE
     Route: 048
  8. ABILIFY [Concomitant]
     Active Substance: ARIPIPRAZOLE
     Route: 065
  9. TEMAZEPAM. [Suspect]
     Active Substance: TEMAZEPAM
     Indication: DRUG ABUSE
     Route: 048
  10. PROZAC [Concomitant]
     Active Substance: FLUOXETINE HYDROCHLORIDE
     Route: 065
  11. DIAZEPAM. [Suspect]
     Active Substance: DIAZEPAM
     Indication: DRUG ABUSE
     Route: 048

REACTIONS (4)
  - Drug abuse [Recovering/Resolving]
  - Toxicity to various agents [Recovering/Resolving]
  - Psychotic disorder [Recovering/Resolving]
  - Injection site erythema [Unknown]
